FAERS Safety Report 5226060-6 (Version None)
Quarter: 2007Q1

REPORT INFORMATION
  Report Type: 
  Country: None (occurrence: None)
  Receive Date: 20070129
  Receipt Date: 20070112
  Transmission Date: 20070707
  Serious: Yes (Death, Hospitalization)
  Sender: FDA-Public Use
  Company Number: A-CH2007-14001

PATIENT
  Age: 86 Year
  Sex: Female

DRUGS (3)
  1. TRACLEER [Suspect]
     Indication: PULMONARY HYPERTENSION
     Dosage: ORAL; 62.5 MG, QD, ORAL
     Route: 048
     Dates: start: 20061101
  2. METOPROLOL SUCCINATE [Concomitant]
  3. KALINOR-BRAUSETABLETTEN (POTASSIUM CITRATE, POTASSIUM CARBONATE) [Concomitant]

REACTIONS (2)
  - MYOCARDIAL INFARCTION [None]
  - OEDEMA PERIPHERAL [None]
